FAERS Safety Report 23127850 (Version 1)
Quarter: 2023Q4

REPORT INFORMATION
  Report Type: Spontaneous
  Country: IN (occurrence: IN)
  Receive Date: 20231031
  Receipt Date: 20231031
  Transmission Date: 20240109
  Serious: Yes (Life-Threatening, Hospitalization, Other)
  Sender: FDA-Public Use
  Company Number: IN-JUBILANT CADISTA PHARMACEUTICALS-2016IN000095

PATIENT
  Age: 25 Year
  Sex: Male
  Weight: 45 kg

DRUGS (6)
  1. LEVOFLOXACIN [Interacting]
     Active Substance: LEVOFLOXACIN
     Indication: Tuberculosis
     Dosage: 100 MG, ONCE PER DAY, ON DAY 1
     Route: 065
  2. LEVOFLOXACIN [Interacting]
     Active Substance: LEVOFLOXACIN
     Dosage: 500 MG, ONCE PER DAY, ON DAY 2
     Route: 065
  3. CIPROFLOXACIN [Interacting]
     Active Substance: CIPROFLOXACIN
     Indication: Product used for unknown indication
     Dosage: UNK, UNK
     Route: 065
  4. AZITHROMYCIN [Concomitant]
     Active Substance: AZITHROMYCIN
     Indication: Drug eruption
     Dosage: 500 MG, ONCE PER DAY
  5. OFLOXACIN [Concomitant]
     Active Substance: OFLOXACIN
     Indication: Product used for unknown indication
     Dosage: UNK, UNK
     Route: 065
  6. CETIRIZINE [Concomitant]
     Active Substance: CETIRIZINE HYDROCHLORIDE
     Indication: Drug eruption
     Dosage: 20 MG, 2 TIMES PER DAY
     Route: 065

REACTIONS (3)
  - Toxic epidermal necrolysis [Unknown]
  - Condition aggravated [Unknown]
  - Cross sensitivity reaction [Unknown]
